FAERS Safety Report 6074370-5 (Version None)
Quarter: 2009Q1

REPORT INFORMATION
  Report Type: 
  Country: None (occurrence: None)
  Receive Date: 20090211
  Receipt Date: 20090130
  Transmission Date: 20090719
  Serious: Yes (Other)
  Sender: FDA-Public Use
  Company Number: SE-PFIZER INC-2009165185

PATIENT

DRUGS (12)
  1. DETRUSITOL SR [Suspect]
     Indication: HYPERTONIC BLADDER
     Dates: start: 20080131, end: 20081104
  2. FURIX [Interacting]
     Indication: OEDEMA
  3. OESTRIOL ^NM PHARMA^ [Concomitant]
     Dosage: UNK
  4. IMDUR [Concomitant]
     Dosage: UNK
  5. FUROSEMIDE [Concomitant]
  6. CARDIZEM [Concomitant]
     Dosage: UNK
  7. OMEPRAZOLE [Concomitant]
     Dosage: UNK
  8. INOLAXOL [Concomitant]
     Dosage: UNK
  9. PULMICORT-100 [Concomitant]
     Dosage: UNK
  10. BRICANYL [Concomitant]
     Dosage: UNK
  11. PARACETAMOL [Concomitant]
     Dosage: UNK
  12. LEVOTHYROXINE SODIUM [Concomitant]
     Dosage: UNK

REACTIONS (4)
  - DRUG INTERACTION [None]
  - RENAL CYST [None]
  - URINARY RETENTION [None]
  - URINARY TRACT INFECTION [None]
